FAERS Safety Report 16083808 (Version 1)
Quarter: 2019Q2

REPORT INFORMATION
  Report Type: Spontaneous
  Country: US (occurrence: US)
  Receive Date: 20190315
  Receipt Date: 20190315
  Transmission Date: 20190711
  Serious: Yes (Disabling)
  Sender: FDA-Public Use
  Company Number: None

PATIENT
  Age: 52 Year
  Sex: Female
  Weight: 81 kg

DRUGS (7)
  1. B VITAMIN [Concomitant]
  2. CAYENNE PEPPER [Concomitant]
     Active Substance: CAPSICUM
  3. BEE POLLEN [Concomitant]
     Active Substance: BEE POLLEN
  4. MACCA [Concomitant]
  5. GINGER. [Concomitant]
     Active Substance: GINGER
  6. FRANKINCENSE [Concomitant]
  7. MEGESTROL [Suspect]
     Active Substance: MEGESTROL
     Indication: UTERINE DILATION AND CURETTAGE
     Route: 048
     Dates: start: 20190214, end: 20190228

REACTIONS (5)
  - Cold sweat [None]
  - Body temperature decreased [None]
  - Chills [None]
  - Feeling cold [None]
  - Sleep disorder [None]

NARRATIVE: CASE EVENT DATE: 20190304
